FAERS Safety Report 14697111 (Version 1)
Quarter: 2018Q1

REPORT INFORMATION
  Report Type: Spontaneous
  Country: US (occurrence: US)
  Receive Date: 20180330
  Receipt Date: 20180330
  Transmission Date: 20180509
  Serious: No
  Sender: FDA-Public Use
  Company Number: US-SA-2017SA105814

PATIENT
  Age: 60 Year
  Sex: Female

DRUGS (2)
  1. ALLEGRA ALLERGY [Suspect]
     Active Substance: FEXOFENADINE HYDROCHLORIDE
     Indication: MULTIPLE ALLERGIES
     Dosage: START DATE: MAY BE 15 YEARS
     Route: 048
  2. GINKGO BILOBA [Concomitant]
     Active Substance: GINKGO
     Indication: MENIERE^S DISEASE
     Route: 065

REACTIONS (4)
  - Fatigue [Recovered/Resolved]
  - Dry mouth [Recovered/Resolved]
  - Product counterfeit [Unknown]
  - Drug ineffective [Unknown]

NARRATIVE: CASE EVENT DATE: 20170419
